FAERS Safety Report 24711237 (Version 1)
Quarter: 2024Q4

REPORT INFORMATION
  Report Type: Spontaneous
  Country: US (occurrence: None)
  Receive Date: 20241206
  Receipt Date: 20241206
  Transmission Date: 20250115
  Serious: No
  Sender: Public
  Company Number: None

PATIENT
  Age: 35 Year
  Sex: Female

DRUGS (1)
  1. SKYRIZI [Suspect]
     Active Substance: RISANKIZUMAB-RZAA
     Indication: Psoriasis
     Dosage: OTHER FREQUENCY : WK0ANDWK4ASDIRECTED;?
     Route: 058
     Dates: start: 202410

REACTIONS (10)
  - Pyrexia [None]
  - Oropharyngeal pain [None]
  - Chills [None]
  - Fatigue [None]
  - Back pain [None]
  - Flank pain [None]
  - Dysuria [None]
  - Cough [None]
  - Dyspnoea [None]
  - Productive cough [None]
